APPROVED DRUG PRODUCT: MOXEZA
Active Ingredient: MOXIFLOXACIN HYDROCHLORIDE
Strength: EQ 0.5% BASE **Federal Register determination that product was not discontinued or withdrawn for safety or effectiveness reasons**
Dosage Form/Route: SOLUTION/DROPS;OPHTHALMIC
Application: N022428 | Product #001
Applicant: HARROW EYE LLC
Approved: Nov 19, 2010 | RLD: Yes | RS: No | Type: DISCN

PATENTS:
Patent 9114168 | Expires: May 29, 2029
Patent 8450311 | Expires: May 29, 2029